FAERS Safety Report 9835091 (Version 1)
Quarter: 2014Q1

REPORT INFORMATION
  Report Type: Spontaneous
  Country: US (occurrence: US)
  Receive Date: 20140122
  Receipt Date: 20140122
  Transmission Date: 20141002
  Serious: No
  Sender: FDA-Public Use
  Company Number: US-009507513-1401USA006143

PATIENT
  Age: 24 Year
  Sex: Female
  Weight: 98.41 kg

DRUGS (2)
  1. NEXPLANON [Suspect]
     Indication: CONTRACEPTION
     Dosage: 1 ROD
     Route: 059
     Dates: start: 20120815
  2. IBUPROFEN [Concomitant]

REACTIONS (2)
  - Application site discomfort [Not Recovered/Not Resolved]
  - Device breakage [Not Recovered/Not Resolved]
